FAERS Safety Report 5156085-0 (Version None)
Quarter: 2006Q4

REPORT INFORMATION
  Report Type: 
  Country: None (occurrence: None)
  Receive Date: 20061122
  Receipt Date: 20061110
  Transmission Date: 20070319
  Serious: Yes (Hospitalization)
  Sender: FDA-Public Use
  Company Number: 2006SE06083

PATIENT
  Age: 46 Year
  Sex: Male

DRUGS (1)
  1. NEXIUM [Suspect]
     Indication: REFLUX OESOPHAGITIS
     Dosage: (1-)2 TABLETS (A 20 MG) PER DAY
     Route: 048
     Dates: start: 20060829, end: 20060928

REACTIONS (4)
  - ABDOMINAL PAIN [None]
  - FAECES PALE [None]
  - MALAISE [None]
  - WEIGHT DECREASED [None]
